FAERS Safety Report 7389175-2 (Version None)
Quarter: 2011Q1

REPORT INFORMATION
  Report Type: 
  Country: None (occurrence: None)
  Receive Date: 20110324
  Receipt Date: 20110218
  Transmission Date: 20110831
  Serious: Yes (Other)
  Sender: FDA-Public Use
  Company Number: PI-05414

PATIENT
  Age: 2 Month
  Sex: Female

DRUGS (2)
  1. CHLORAPREP WITH TINT [Suspect]
     Indication: INFECTION PROPHYLAXIS
     Dosage: 10.5ML, ONCE, TOPICAL
     Route: 061
     Dates: start: 20110117
  2. CHLORAPREP WITH TINT [Suspect]
     Indication: INFECTION PROPHYLAXIS
     Dosage: 10.5ML, ONCE, TOPICAL
     Route: 061
     Dates: start: 20110117

REACTIONS (1)
  - APPLICATION SITE BURN [None]
